FAERS Safety Report 4520973-6 (Version None)
Quarter: 2004Q4

REPORT INFORMATION
  Report Type: 
  Country: None (occurrence: None)
  Receive Date: 20041206
  Receipt Date: 20041123
  Transmission Date: 20050328
  Serious: No
  Sender: FDA-Public Use
  Company Number: 04H-143-0282076-00

PATIENT
  Age: 38 Year
  Sex: Female

DRUGS (11)
  1. MORPHINE SULFATE [Suspect]
     Indication: POST PROCEDURAL PAIN
     Dosage: 2 MG, SINGLE DOSE, INTRAVENOUS VIA PCA  SEE IMAGE
     Route: 042
     Dates: start: 20041122, end: 20041122
  2. MORPHINE SULFATE [Suspect]
     Indication: POST PROCEDURAL PAIN
     Dosage: 2 MG, SINGLE DOSE, INTRAVENOUS VIA PCA  SEE IMAGE
     Route: 042
     Dates: start: 20041123, end: 20041123
  3. PROPOFOL [Concomitant]
  4. FLAGYL [Concomitant]
  5. REMIFENTANIL HYDROCHLORIDE [Concomitant]
  6. PROSTIGMINE [Concomitant]
  7. GLYCOPYRRONIUM BROMIDE [Concomitant]
  8. CEFRADINE [Concomitant]
  9. CISATRACURIUM BESILATE [Concomitant]
  10. KETOROLAC TROMETHAMINE [Concomitant]
  11. XYLOCAINE W/ EPINEPHRINE [Concomitant]

REACTIONS (6)
  - CYANOSIS [None]
  - DEVICE FAILURE [None]
  - DYSPNOEA [None]
  - OVERDOSE [None]
  - PRURITUS [None]
  - RESPIRATORY ARREST [None]
